FAERS Safety Report 9109338 (Version 2)
Quarter: 2013Q1

REPORT INFORMATION
  Report Type: Spontaneous
  Country: RU (occurrence: RU)
  Receive Date: 20130222
  Receipt Date: 20130301
  Transmission Date: 20140127
  Serious: No
  Sender: FDA-Public Use
  Company Number: RU-009507513-1302RUS009542

PATIENT
  Sex: 0

DRUGS (1)
  1. PEGINTRON [Suspect]
     Indication: HEPATITIS C
     Dosage: UNK MICROGRAM, UNK

REACTIONS (2)
  - Necrosis [Unknown]
  - Purulent discharge [Unknown]
